FAERS Safety Report 24706552 (Version 2)
Quarter: 2024Q4

REPORT INFORMATION
  Report Type: Spontaneous
  Country: US (occurrence: US)
  Receive Date: 20241206
  Receipt Date: 20241213
  Transmission Date: 20250114
  Serious: No
  Sender: FRESENIUS KABI
  Company Number: US-FreseniusKabi-FK202418189

PATIENT
  Age: 58 Year
  Sex: Female
  Weight: 116 kg

DRUGS (21)
  1. HEPARIN SODIUM [Suspect]
     Active Substance: HEPARIN SODIUM
     Indication: Product used for unknown indication
  2. HEPARIN SODIUM [Suspect]
     Active Substance: HEPARIN SODIUM
     Dosage: BOLUS ONLY?DOSE: 20,000 UNITS
     Dates: start: 20241203
  3. HEPARIN SODIUM [Suspect]
     Active Substance: HEPARIN SODIUM
     Dosage: BOLUS ONLY?DOSE: 30,000 UNITS
     Dates: start: 20241203
  4. HEPARIN SODIUM [Suspect]
     Active Substance: HEPARIN SODIUM
     Dosage: BOLUS ONLY?DOSE: 20,000 UNITS
     Dates: start: 20241203
  5. HEPARIN SODIUM [Suspect]
     Active Substance: HEPARIN SODIUM
     Dosage: FORM OF ADMINISTRATION: INJECTION 1000 UNITS/1 ML?TOTAL DOSE GIVEN: 10,000 UNITS?CPB PRIME
     Dates: start: 20241203
  6. HEPARIN SODIUM [Suspect]
     Active Substance: HEPARIN SODIUM
     Dosage: BOLUS ONLY?DOSE: 30,000 UNITS
     Dates: start: 20241203
  7. AMICAR [Concomitant]
     Active Substance: AMINOCAPROIC ACID
     Indication: Product used for unknown indication
     Dosage: AMINOCAPROIC ACID 5G IN SODIUM CHLORIDE 0.9 PERCENT 20 ML INFUSION (MG/KG/HR)?STOPPED
     Dates: start: 20241203
  8. AMICAR [Concomitant]
     Active Substance: AMINOCAPROIC ACID
     Dosage: AMINOCAPROIC ACID 5G IN SODIUM CHLORIDE 0.9 PERCENT 20 ML INFUSION (MG/KG/HR)?DOSE: 12.8 ML/HR?RATE
     Dates: start: 20241203
  9. AMICAR [Concomitant]
     Active Substance: AMINOCAPROIC ACID
     Dosage: AMINOCAPROIC ACID 5G IN SODIUM CHLORIDE 0.9 PERCENT 20 ML INFUSION (MG/KG/HR)?STOPPED
     Dates: start: 20241203
  10. AMICAR [Concomitant]
     Active Substance: AMINOCAPROIC ACID
     Dosage: AMINOCAPROIC ACID 5G IN SODIUM CHLORIDE 0.9 PERCENT 20 ML INFUSION (MG/KG/HR)?STOPPED
     Dates: start: 20241203
  11. AMICAR [Concomitant]
     Active Substance: AMINOCAPROIC ACID
     Dosage: AMINOCAPROIC ACID 5G IN SODIUM CHLORIDE 0.9 PERCENT 20 ML INFUSION (MG/KG/HR)?STOPPED
     Dates: start: 20241203
  12. AMICAR [Concomitant]
     Active Substance: AMINOCAPROIC ACID
     Dosage: AMINOCAPROIC ACID 5G IN SODIUM CHLORIDE 0.9 PERCENT 20 ML INFUSION (MG/KG/HR)?DOSE: 12.8 ML/HR?RESTA
     Dates: start: 20241203
  13. AMICAR [Concomitant]
     Active Substance: AMINOCAPROIC ACID
     Dosage: AMINOCAPROIC ACID 5G IN SODIUM CHLORIDE 0.9 PERCENT 20 ML INFUSION (MG/KG/HR)?STOPPED
     Dates: start: 20241203
  14. AMICAR [Concomitant]
     Active Substance: AMINOCAPROIC ACID
     Dosage: AMINOCAPROIC ACID 5G IN SODIUM CHLORIDE 0.9 PERCENT 20 ML INFUSION (MG/KG/HR)?DOSE: 12.84 ML/HR?NEW
     Dates: start: 20241203
  15. AMICAR [Concomitant]
     Active Substance: AMINOCAPROIC ACID
     Dosage: AMINOCAPROIC ACID INJECTION 250 MG/1 ML)?TOTAL DOSE: 5G
     Dates: start: 20241203
  16. AMICAR [Concomitant]
     Active Substance: AMINOCAPROIC ACID
     Dosage: AMINOCAPROIC ACID BOLUS ONLY (G)?TOTAL DOSE: 5 G
     Dates: start: 20241203
  17. THROMBATE III [Concomitant]
     Active Substance: ANTITHROMBIN III HUMAN
     Indication: Product used for unknown indication
     Dosage: FORM OF ADMINISTRATION: INJECTION?TOTAL DOSE: 2000 UNITS?DOSE: 1,000 UNITS
     Dates: start: 20241203
  18. THROMBATE III [Concomitant]
     Active Substance: ANTITHROMBIN III HUMAN
     Dosage: FORM OF ADMINISTRATION: INJECTION?TOTAL DOSE: 2000 UNITS?DOSE: 1,000 UNITS
     Dates: start: 20241203
  19. PROTAMINE [Concomitant]
     Active Substance: PROTAMINE
     Indication: Product used for unknown indication
     Dosage: BOLUS, TOTAL DOSE: 500 MG
     Dates: start: 20241203
  20. DDAVP [Concomitant]
     Active Substance: DESMOPRESSIN ACETATE
     Indication: Product used for unknown indication
     Dosage: DESMOPRESSIN 32.1 MCG IN SODIUM CHLORIDE 0.9 PERCENT 50 ML IVPB (MCG)?TOTAL DOSE: 32.1 MCG-58.03 ML
     Dates: start: 20241203
  21. KCENTRA [Concomitant]
     Active Substance: COAGULATION FACTOR IX HUMAN\COAGULATION FACTOR VII HUMAN\COAGULATION FACTOR X HUMAN\PROTEIN C\PROTEI
     Indication: Product used for unknown indication
     Dosage: 4 FACTOR PCC INJECTION?TOTAL DOSE: 1,021 UNITS
     Dates: start: 20241203

REACTIONS (1)
  - Drug ineffective [Unknown]

NARRATIVE: CASE EVENT DATE: 20241203
